FAERS Safety Report 4561824-3 (Version None)
Quarter: 2005Q1

REPORT INFORMATION
  Report Type: 
  Country: None (occurrence: None)
  Receive Date: 20050125
  Receipt Date: 20050113
  Transmission Date: 20050727
  Serious: Yes (Other)
  Sender: FDA-Public Use
  Company Number: 200415045BCC

PATIENT
  Sex: Female

DRUGS (2)
  1. ALEVE [Suspect]
     Dosage: ORAL
     Route: 048
     Dates: end: 20041017
  2. VERELAN [Concomitant]

REACTIONS (3)
  - EYE PRURITUS [None]
  - HEADACHE [None]
  - HYPERTENSION [None]
